FAERS Safety Report 5526308-4 (Version None)
Quarter: 2007Q4

REPORT INFORMATION
  Report Type: 
  Country: None (occurrence: None)
  Receive Date: 20071121
  Receipt Date: 20071121
  Transmission Date: 20080405
  Serious: Yes (Hospitalization)
  Sender: FDA-Public Use
  Company Number: None

PATIENT
  Age: 66 Year
  Sex: Female
  Weight: 118 kg

DRUGS (2)
  1. MULTIVITA-MIN PURITAN'S PRIDGE [Suspect]
     Indication: OVARIAN CANCER
     Dosage: 1 TAB QID PO
     Route: 048
     Dates: start: 20071101, end: 20071109
  2. VITAMIN B6 [Suspect]
     Dosage: 50MG TID PO'
     Route: 048
     Dates: start: 20071101, end: 20071109

REACTIONS (2)
  - NEUROPATHY [None]
  - POST PROCEDURAL FISTULA [None]
